FAERS Safety Report 17680886 (Version 1)
Quarter: 2020Q2

REPORT INFORMATION
  Report Type: Spontaneous
  Country: CZ (occurrence: CZ)
  Receive Date: 20200417
  Receipt Date: 20200417
  Transmission Date: 20200714
  Serious: Yes (Life-Threatening, Hospitalization)
  Sender: FDA-Public Use
  Company Number: NVSC2020CZ100990

PATIENT
  Age: 73 Year
  Sex: Female

DRUGS (4)
  1. ZOLPIDEM [Suspect]
     Active Substance: ZOLPIDEM TARTRATE
     Indication: DEPRESSION
     Dosage: 10 MG, QD
     Route: 065
  2. VENLAFAXINE [Suspect]
     Active Substance: VENLAFAXINE HYDROCHLORIDE
     Indication: DEPRESSION
     Dosage: 225 MG, QD
     Route: 065
  3. AMISULPRIDE [Suspect]
     Active Substance: AMISULPRIDE
     Indication: DEPRESSION
     Dosage: 200-400 MG, QD
     Route: 065
  4. MIRTAZAPINE. [Suspect]
     Active Substance: MIRTAZAPINE
     Indication: DEPRESSION
     Dosage: 45 MG, QD
     Route: 065

REACTIONS (12)
  - Ventricular tachycardia [Recovered/Resolved]
  - Confusional state [Recovering/Resolving]
  - Hyperthermia [Recovering/Resolving]
  - Pulse absent [Recovered/Resolved]
  - Disorientation [Recovering/Resolving]
  - Movement disorder [Recovering/Resolving]
  - Mydriasis [Recovering/Resolving]
  - Musculoskeletal stiffness [Recovering/Resolving]
  - Tremor [Recovering/Resolving]
  - Neuroleptic malignant syndrome [Recovering/Resolving]
  - Loss of consciousness [Recovering/Resolving]
  - Muscle spasms [Recovering/Resolving]
